FAERS Safety Report 23711194 (Version 1)
Quarter: 2024Q2

REPORT INFORMATION
  Report Type: Spontaneous
  Country: CN (occurrence: CN)
  Receive Date: 20240405
  Receipt Date: 20240405
  Transmission Date: 20240716
  Serious: Yes (Death, Other)
  Sender: FDA-Public Use
  Company Number: CN-ALKEM LABORATORIES LIMITED-CN-ALKEM-2024-00764

PATIENT
  Age: 1 Month
  Sex: Male

DRUGS (1)
  1. SIROLIMUS [Suspect]
     Active Substance: SIROLIMUS
     Indication: Product used for unknown indication
     Dosage: 0.7 MILLIGRAM/SQ. METER, BID
     Route: 065

REACTIONS (2)
  - Pneumonia bacterial [Fatal]
  - Pneumonia fungal [Fatal]
